FAERS Safety Report 4353436-1 (Version None)
Quarter: 2004Q2

REPORT INFORMATION
  Report Type: 
  Country: None (occurrence: None)
  Receive Date: 20040428
  Receipt Date: 20040415
  Transmission Date: 20050107
  Serious: Yes (Disabling)
  Sender: FDA-Public Use
  Company Number: 200410110BYL

PATIENT
  Age: 3 Year
  Sex: Male
  Weight: 13.6 kg

DRUGS (3)
  1. GAMIMUNE N 5% [Suspect]
     Indication: KAWASAKI'S DISEASE
     Dosage: 27.5 MG, INTRAVENOUS DRIP
     Route: 041
     Dates: start: 20040223, end: 20040224
  2. ASPIRIN [Concomitant]
  3. SELBEX [Concomitant]

REACTIONS (2)
  - IDIOPATHIC THROMBOCYTOPENIC PURPURA [None]
  - INFECTION [None]
